FAERS Safety Report 6180642-6 (Version None)
Quarter: 2009Q2

REPORT INFORMATION
  Report Type: 
  Country: None (occurrence: None)
  Receive Date: 20090506
  Receipt Date: 20090429
  Transmission Date: 20091009
  Serious: Yes (Death, Other)
  Sender: FDA-Public Use
  Company Number: CH-AVENTIS-200912326EU

PATIENT
  Age: 72 Year
  Sex: Male
  Weight: 91 kg

DRUGS (8)
  1. ENOXAPARIN SODIUM [Suspect]
     Route: 058
     Dates: start: 20090323
  2. PLAVIX [Suspect]
     Route: 048
     Dates: start: 20090318
  3. ACTIVASE [Suspect]
     Indication: CEREBRAL INFARCTION
     Route: 041
     Dates: start: 20090325, end: 20090325
  4. ASPIRIN [Suspect]
     Route: 048
     Dates: start: 20090318, end: 20090327
  5. BEBULIN VH IMMUNO [Suspect]
     Route: 041
     Dates: start: 20090325, end: 20090325
  6. HAEMOCOMPLETTAN [Suspect]
     Route: 041
     Dates: start: 20090325, end: 20090325
  7. CONCOR                             /00802602/ [Concomitant]
  8. NITRODERM [Concomitant]
     Route: 062

REACTIONS (5)
  - BRAIN HERNIATION [None]
  - EPISTAXIS [None]
  - HAEMATEMESIS [None]
  - HAEMATOMA [None]
  - MYOCARDIAL INFARCTION [None]
